FAERS Safety Report 8609029-0 (Version None)
Quarter: 2012Q3

REPORT INFORMATION
  Report Type: 
  Country: None (occurrence: None)
  Receive Date: 20120821
  Receipt Date: 20120815
  Transmission Date: 20120928
  Serious: Yes (Other)
  Sender: FDA-Public Use
  Company Number: CH-GLAXOSMITHKLINE-B0823928A

PATIENT
  Age: 53 Year
  Sex: Male
  Weight: 93 kg

DRUGS (6)
  1. DUTASTERIDE/TAMSULOSIN HYDROCHLORIDE [Suspect]
     Indication: PRODUCT USED FOR UNKNOWN INDICATION
     Dosage: .5MG PER DAY
     Route: 048
     Dates: start: 20120301, end: 20120401
  2. ONGLYZA [Concomitant]
     Dosage: 5MG PER DAY
     Route: 048
  3. ATORVASTATIN CALCIUM [Concomitant]
     Dosage: 20MG PER DAY
     Route: 048
  4. METFORMIN HCL [Concomitant]
     Dosage: 1000MG PER DAY
     Route: 048
  5. METOPROLOL SUCCINATE [Suspect]
     Indication: PRODUCT USED FOR UNKNOWN INDICATION
     Dosage: 100MG PER DAY
     Route: 042
  6. OLMESARTAN MEDOXOMIL [Concomitant]
     Dosage: 20MG PER DAY
     Route: 048

REACTIONS (1)
  - SYNCOPE [None]
